FAERS Safety Report 9392860 (Version 2)
Quarter: 2013Q3

REPORT INFORMATION
  Report Type: Spontaneous
  Country: US (occurrence: US)
  Receive Date: 20130710
  Receipt Date: 20130829
  Transmission Date: 20140515
  Serious: Yes (Hospitalization)
  Sender: FDA-Public Use
  Company Number: US-GENZYME-POMP-1003112

PATIENT
  Age: 17 Year
  Sex: Female
  Weight: 45 kg

DRUGS (13)
  1. LUMIZYME [Suspect]
     Indication: GLYCOGEN STORAGE DISEASE TYPE II
     Dosage: 900 MG, Q2W
     Route: 042
     Dates: start: 20090427
  2. LUMIZYME [Suspect]
     Dosage: 500 MG, QW
     Route: 042
     Dates: start: 201207
  3. IBUPROFEN [Concomitant]
     Indication: PREMEDICATION
     Dosage: 400 MG, UNK
     Route: 048
     Dates: start: 20130628
  4. IBUPROFEN [Concomitant]
     Indication: PREMEDICATION
  5. BENADRYL [Concomitant]
     Indication: PREMEDICATION
     Dosage: 50 UNK, UNK
     Route: 048
     Dates: start: 20130628
  6. BENADRYL [Concomitant]
     Indication: PREMEDICATION
     Dosage: 25 MG, UNK
     Route: 042
  7. ZOLOFT [Concomitant]
     Indication: PRODUCT USED FOR UNKNOWN INDICATION
     Dosage: 50 MG, QD
     Route: 065
  8. EPHEDRINE [Concomitant]
     Indication: PRODUCT USED FOR UNKNOWN INDICATION
     Dosage: 25 MG, 1X/W
     Route: 065
  9. ELAVIL [Concomitant]
     Indication: PRODUCT USED FOR UNKNOWN INDICATION
     Dosage: 50 MG, QD
     Route: 065
  10. CELEBREX [Concomitant]
     Indication: PRODUCT USED FOR UNKNOWN INDICATION
     Dosage: 100 MG, BID
     Route: 065
  11. PHENERGAN [Concomitant]
     Indication: PRODUCT USED FOR UNKNOWN INDICATION
     Dosage: UNK
     Route: 065
  12. GABAPENTIN [Concomitant]
     Indication: PRODUCT USED FOR UNKNOWN INDICATION
     Dosage: 300 MG, TID
     Route: 065
  13. LORTAB [Concomitant]
     Indication: PRODUCT USED FOR UNKNOWN INDICATION
     Dosage: UNK
     Route: 065

REACTIONS (6)
  - Head discomfort [Unknown]
  - Serum sickness [Not Recovered/Not Resolved]
  - Musculoskeletal pain [Unknown]
  - Pain in extremity [Unknown]
  - Dizziness [Unknown]
  - Paraesthesia [Unknown]
